FAERS Safety Report 7989716-8 (Version None)
Quarter: 2011Q4

REPORT INFORMATION
  Report Type: 
  Country: None (occurrence: None)
  Receive Date: 20111219
  Receipt Date: 20111205
  Transmission Date: 20120403
  Serious: Yes (Hospitalization, Other)
  Sender: FDA-Public Use
  Company Number: US-ELI_LILLY_AND_COMPANY-US201108001140

PATIENT
  Sex: Female
  Weight: 48 kg

DRUGS (20)
  1. FORTEO [Suspect]
     Dosage: 20 UG, QD
  2. FORTEO [Suspect]
     Dosage: 20 UG, QD
  3. VITAMIN D [Concomitant]
     Dosage: 50000 IU, WEEKLY (1/W)
  4. METHADONE HCL [Concomitant]
  5. FORTEO [Suspect]
     Dosage: 20 UG, QD
  6. AMBIEN [Concomitant]
  7. FORTEO [Suspect]
     Indication: OSTEOPOROSIS
     Dosage: 20 UG, QD
     Dates: end: 20110717
  8. LEVOTHYROXINE SODIUM [Concomitant]
     Indication: THYROID DISORDER
     Dosage: UNK UNK, QD
  9. LYRICA [Concomitant]
     Dosage: UNK, BID
  10. COPAXONE [Concomitant]
     Indication: MULTIPLE SCLEROSIS
     Dosage: 20 MG, QD
  11. CYMBALTA [Concomitant]
     Indication: DEPRESSION
     Dosage: 60 MG, QD
  12. FORTEO [Suspect]
     Dosage: 20 UG, QD
     Route: 065
  13. ASPIRIN [Concomitant]
     Dosage: UNK, QD
  14. LIPITOR [Concomitant]
     Dosage: 40 MG, QD
  15. MULTI-VITAMINS [Concomitant]
  16. SYNTHROID [Concomitant]
     Indication: THYROID DISORDER
     Dosage: 0.05 MG, QD
  17. HYDROMORPHONE HCL [Concomitant]
     Indication: PAIN
  18. FORTEO [Suspect]
     Dosage: 20 UG, QD
     Route: 065
  19. XANAX [Concomitant]
     Indication: ANXIETY
     Dosage: 1 MG, 4 TIMES DAILY
  20. POTASSIUM CHLORIDE [Concomitant]

REACTIONS (26)
  - FALL [None]
  - DYSPNOEA [None]
  - NAUSEA [None]
  - FEELING ABNORMAL [None]
  - FATIGUE [None]
  - BALANCE DISORDER [None]
  - MULTIPLE SCLEROSIS [None]
  - SYNCOPE [None]
  - ASTHENIA [None]
  - DECREASED APPETITE [None]
  - CYSTITIS [None]
  - DEHYDRATION [None]
  - JAW DISORDER [None]
  - DRUG DOSE OMISSION [None]
  - GAIT DISTURBANCE [None]
  - VISUAL IMPAIRMENT [None]
  - SLEEP DISORDER [None]
  - CONFUSIONAL STATE [None]
  - DYSKINESIA [None]
  - MALAISE [None]
  - MUSCULAR WEAKNESS [None]
  - HOSPITALISATION [None]
  - MEMORY IMPAIRMENT [None]
  - CONTUSION [None]
  - PAIN [None]
  - ADVERSE EVENT [None]
